FAERS Safety Report 9671876 (Version 1)
Quarter: 2013Q4

REPORT INFORMATION
  Report Type: Spontaneous
  Country: US (occurrence: US)
  Receive Date: 20131106
  Receipt Date: 20131106
  Transmission Date: 20140711
  Serious: Yes (Other)
  Sender: FDA-Public Use
  Company Number: US-GLAXOSMITHKLINE-A1047524A

PATIENT
  Age: 30 Year
  Sex: Male

DRUGS (8)
  1. BENLYSTA [Suspect]
     Indication: SYSTEMIC LUPUS ERYTHEMATOSUS
     Route: 042
     Dates: start: 20130623
  2. PREDNISONE [Concomitant]
  3. PLAQUENIL [Concomitant]
  4. CALCIUM SUPPLEMENT [Concomitant]
  5. CITRACAL [Concomitant]
  6. VITAMIN B3 [Concomitant]
  7. VITAMIN D [Concomitant]
  8. MENS FORMULA MULTIVITAMIN [Concomitant]

REACTIONS (8)
  - Anaphylactic reaction [Recovered/Resolved]
  - Clostridium difficile infection [Unknown]
  - Convulsion [Recovered/Resolved]
  - Nausea [Recovered/Resolved]
  - Renal pain [Recovered/Resolved]
  - Back pain [Recovered/Resolved]
  - Sensory disturbance [Recovered/Resolved]
  - Paraesthesia [Unknown]
